FAERS Safety Report 4651694-7 (Version None)
Quarter: 2005Q2

REPORT INFORMATION
  Report Type: 
  Country: None (occurrence: None)
  Receive Date: 20050502
  Receipt Date: 20050405
  Transmission Date: 20051028
  Serious: Yes (Hospitalization)
  Sender: FDA-Public Use
  Company Number: 800357

PATIENT
  Age: 65 Year
  Sex: Male
  Weight: 83.0083 kg

DRUGS (1)
  1. DIANEAL PD-2 W/ DEXTROSE 1.5% [Suspect]

REACTIONS (2)
  - ACINETOBACTER INFECTION [None]
  - PERITONITIS [None]
